FAERS Safety Report 15250181 (Version 1)
Quarter: 2018Q3

REPORT INFORMATION
  Report Type: Spontaneous
  Country: US (occurrence: US)
  Receive Date: 20180807
  Receipt Date: 20180807
  Transmission Date: 20181010
  Serious: Yes (Other)
  Sender: FDA-Public Use
  Company Number: US-009507513-1808USA000582

PATIENT
  Sex: Female
  Weight: 115.4 kg

DRUGS (3)
  1. NEXPLANON [Suspect]
     Active Substance: ETONOGESTREL
     Dosage: 68 MG/ EVERY 3 YEARS
     Route: 059
     Dates: start: 20170914
  2. NEXPLANON [Suspect]
     Active Substance: ETONOGESTREL
     Dosage: 68 MG/ EVERY 3 YEARS
     Route: 059
     Dates: start: 20170628, end: 20170702
  3. NEXPLANON [Suspect]
     Active Substance: ETONOGESTREL
     Indication: CONTRACEPTION
     Dosage: 68 MG/ EVERY 3 YEARS
     Route: 059
     Dates: start: 2014

REACTIONS (3)
  - Device expulsion [Recovered/Resolved]
  - Angioedema [Unknown]
  - Urticaria [Unknown]

NARRATIVE: CASE EVENT DATE: 20170702
